FAERS Safety Report 15347786 (Version 2)
Quarter: 2018Q4

REPORT INFORMATION
  Report Type: Report from Study
  Country: KR (occurrence: KR)
  Receive Date: 20180904
  Receipt Date: 20181009
  Transmission Date: 20190204
  Serious: Yes (Death, Hospitalization, Other)
  Sender: FDA-Public Use
  Company Number: KR-ACTELION-A-CH2018-177697

PATIENT
  Age: 62 Year
  Sex: Female
  Weight: 57.2 kg

DRUGS (61)
  1. PAHTENSION [Concomitant]
     Indication: PULMONARY ARTERIAL HYPERTENSION
     Dosage: 60 MG, TID
     Route: 048
     Dates: start: 20151230, end: 20180208
  2. ALDACTONE [Concomitant]
     Active Substance: SPIRONOLACTONE
     Dosage: 25 MG, TID
     Route: 048
     Dates: start: 20180119, end: 20180201
  3. LASIX [Concomitant]
     Active Substance: FUROSEMIDE
     Dosage: 3 DF, QD
     Route: 048
     Dates: start: 20171126, end: 20171214
  4. PANTOLINE [Concomitant]
     Active Substance: PANTOPRAZOLE SODIUM
     Dosage: 20 MG, QD
     Route: 048
     Dates: start: 20171215, end: 20180524
  5. SYNTHYROXINE [Concomitant]
     Active Substance: LEVOTHYROXINE SODIUM
     Dosage: 100 MCG, QD
     Route: 048
     Dates: start: 20131017, end: 20180530
  6. REMODULIN [Concomitant]
     Active Substance: TREPROSTINIL
     Dosage: 28 NG/KG, PER MIN
     Route: 058
     Dates: start: 20180422
  7. REMODULIN [Concomitant]
     Active Substance: TREPROSTINIL
     Dosage: 32 NG/KG, PER MIN
     Route: 058
     Dates: start: 20180425
  8. CLEXANE [Concomitant]
     Active Substance: ENOXAPARIN SODIUM
     Dosage: 60 MG, QD
     Route: 058
  9. UPTRAVI [Suspect]
     Active Substance: SELEXIPAG
     Indication: PULMONARY ARTERIAL HYPERTENSION
     Dosage: 0.2 MG, BID
     Route: 048
     Dates: start: 20171222, end: 20180118
  10. UPTRAVI [Suspect]
     Active Substance: SELEXIPAG
     Dosage: 1.2 MG, QD
     Route: 048
     Dates: start: 20180126, end: 20180411
  11. ALDACTONE [Concomitant]
     Active Substance: SPIRONOLACTONE
     Dosage: 25 MG, BID
     Route: 048
     Dates: start: 20161019, end: 20180119
  12. LASIX [Concomitant]
     Active Substance: FUROSEMIDE
     Dosage: 4 DF, QD
     Route: 048
     Dates: start: 20180222, end: 20180223
  13. ZYDENA [Concomitant]
     Active Substance: UDENAFIL
     Indication: PULMONARY ARTERIAL HYPERTENSION
     Dosage: 50 MG, QD
     Route: 048
     Dates: start: 20180209, end: 20180516
  14. WARFARIN [Concomitant]
     Active Substance: WARFARIN
     Dosage: 5 MG, QD
     Route: 048
     Dates: start: 20171222, end: 20180406
  15. DIOVAN [Concomitant]
     Active Substance: VALSARTAN
     Dosage: 20 MG, UNK
     Route: 048
     Dates: start: 20180222, end: 20180224
  16. CIALIS [Concomitant]
     Active Substance: TADALAFIL
     Dosage: 40 MG, UNK
     Route: 048
     Dates: start: 20180417, end: 20180524
  17. AMILO [Concomitant]
     Dosage: 5 MG, QD
     Route: 048
     Dates: start: 20180428, end: 20180502
  18. DOPAMIX [Concomitant]
     Dosage: UNK
     Route: 042
     Dates: start: 20180522, end: 20180530
  19. NEXIUM [Concomitant]
     Active Substance: ESOMEPRAZOLE MAGNESIUM
  20. UPTRAVI [Suspect]
     Active Substance: SELEXIPAG
     Dosage: 1 MG, QD
     Route: 048
     Dates: start: 20180412, end: 20180412
  21. PHAZYME [Concomitant]
     Active Substance: DIMETHICONE 410
     Indication: PROPHYLAXIS
     Dosage: 95 MG, TID
     Route: 048
     Dates: start: 20171124, end: 20180405
  22. LASIX [Concomitant]
     Active Substance: FUROSEMIDE
     Dosage: 20 MG, QD
     Route: 042
     Dates: start: 20180119, end: 20180119
  23. BEECOM [Concomitant]
     Dosage: 1 DF, QD
     Route: 048
     Dates: start: 20180119, end: 20180524
  24. REMODULIN [Concomitant]
     Active Substance: TREPROSTINIL
     Indication: RIGHT-TO-LEFT CARDIAC SHUNT
     Dosage: 4 NG/KG, PER MIN
     Route: 058
     Dates: start: 20180412
  25. REMODULIN [Concomitant]
     Active Substance: TREPROSTINIL
     Dosage: 34 NG/KG, PER MIN
     Route: 058
     Dates: start: 20180428, end: 20180530
  26. K-CONTIN CONTINUS [Concomitant]
     Dosage: 4 DF, QD
     Route: 048
     Dates: start: 20180301, end: 20180302
  27. REMODULIN [Concomitant]
     Active Substance: TREPROSTINIL
     Dosage: 24 NG/KG, PER MIN
     Route: 058
     Dates: start: 20180418
  28. KALIMATE [Concomitant]
     Active Substance: CALCIUM POLYSTYRENE SULFONATE
     Dosage: 4 DF, UNK
     Route: 048
     Dates: start: 20180501, end: 20180520
  29. PANTOLINE [Concomitant]
     Active Substance: PANTOPRAZOLE SODIUM
     Dosage: 40 MG, QD
     Route: 048
     Dates: start: 20171020, end: 20171214
  30. WARFARIN [Concomitant]
     Active Substance: WARFARIN
     Dosage: 7.5 MG, QD
     Route: 048
     Dates: start: 20140502, end: 20171221
  31. CONTINE [Concomitant]
     Dosage: 600 MG, QD
     Route: 048
     Dates: start: 20180202
  32. REMODULIN [Concomitant]
     Active Substance: TREPROSTINIL
     Dosage: 10 NG/KG, PER MIN
     Route: 058
     Dates: start: 20180414
  33. REMODULIN [Concomitant]
     Active Substance: TREPROSTINIL
     Dosage: 26 NG/KG, PER MIN
     Route: 058
     Dates: start: 20180419
  34. SUSPEN [Concomitant]
     Dosage: 1 DF, QD
     Route: 048
     Dates: start: 20180304, end: 20180305
  35. OPSUMIT [Suspect]
     Active Substance: MACITENTAN
     Indication: PULMONARY ARTERIAL HYPERTENSION
     Dosage: 10 MG, QD
     Route: 048
     Dates: start: 20171128, end: 20180524
  36. UPTRAVI [Suspect]
     Active Substance: SELEXIPAG
     Dosage: 0.2 MG, QID
     Route: 048
     Dates: start: 20180119, end: 20180125
  37. LASIX [Concomitant]
     Active Substance: FUROSEMIDE
     Dosage: 20 MG, UNK
     Route: 042
     Dates: start: 20171215, end: 20171215
  38. LASIX [Concomitant]
     Active Substance: FUROSEMIDE
     Dosage: 4 DF, QD
     Route: 048
     Dates: start: 20180302, end: 20180318
  39. ACERTIL [Concomitant]
     Active Substance: PERINDOPRIL ARGININE
     Dosage: 0.5 TAB, QD
     Route: 048
     Dates: start: 20171020, end: 20180201
  40. CAVID [Concomitant]
     Dosage: 1 DF, QD
     Route: 048
     Dates: start: 20171124, end: 20180524
  41. CONTINE [Concomitant]
     Dosage: 600 MG, BID
     Route: 048
     Dates: start: 20180105, end: 20180201
  42. REMODULIN [Concomitant]
     Active Substance: TREPROSTINIL
     Dosage: 14 NG/KG, PER MIN
     Route: 058
     Dates: start: 20180415
  43. K-CONTIN CONTINUS [Concomitant]
     Dosage: 1 DF, QD
     Route: 048
     Dates: start: 20180222, end: 20180225
  44. SILDENAFIL. [Concomitant]
     Active Substance: SILDENAFIL
  45. ALDACTONE [Concomitant]
     Active Substance: SPIRONOLACTONE
     Dosage: 25 MG, TID
     Route: 048
     Dates: start: 20180305, end: 20180409
  46. WARFARIN [Concomitant]
     Active Substance: WARFARIN
     Dosage: 2.5 MG, QD
     Route: 048
     Dates: start: 20180407, end: 20180408
  47. WARFARIN [Concomitant]
     Active Substance: WARFARIN
     Dosage: 5 MG, QD
     Route: 048
     Dates: start: 20180409, end: 20180524
  48. K-CONTIN CONTINUS [Concomitant]
     Dosage: 1 DF, QD
     Route: 048
     Dates: start: 20180316, end: 20180430
  49. SUSPEN [Concomitant]
     Dosage: 3 DF, QD
     Route: 048
     Dates: start: 20180222, end: 20180302
  50. SANCUSO [Concomitant]
     Active Substance: GRANISETRON
     Dosage: UNK
     Dates: start: 20180505, end: 20180530
  51. ALDACTONE [Concomitant]
     Active Substance: SPIRONOLACTONE
     Dosage: 25 MG, BID
     Route: 048
     Dates: start: 20180202, end: 20180304
  52. LASIX [Concomitant]
     Active Substance: FUROSEMIDE
     Dosage: UNK, QID
     Route: 048
     Dates: start: 20171215, end: 20180201
  53. LASIX [Concomitant]
     Active Substance: FUROSEMIDE
     Dosage: 2 DF, BID
     Route: 048
     Dates: start: 20180202, end: 20180213
  54. LASIX [Concomitant]
     Active Substance: FUROSEMIDE
     Dosage: 3 DF, QD
     Route: 048
     Dates: start: 20180214, end: 20180221
  55. LASIX [Concomitant]
     Active Substance: FUROSEMIDE
     Dosage: 3 DF, QD
     Route: 048
     Dates: start: 20180319, end: 20180406
  56. DICAMAX [Concomitant]
     Dosage: 1 DF, QD
     Route: 048
     Dates: start: 20170730, end: 20180524
  57. REMODULIN [Concomitant]
     Active Substance: TREPROSTINIL
     Dosage: 30 NG/KG, PER MIN
     Route: 058
     Dates: start: 20180424
  58. K-CONTIN CONTINUS [Concomitant]
     Dosage: 2 DF, QD
     Route: 048
     Dates: start: 20180105, end: 20180201
  59. K-CONTIN CONTINUS [Concomitant]
     Dosage: 1 DF, QD
     Route: 048
     Dates: start: 20180202, end: 20180221
  60. DIAZEPAM. [Concomitant]
     Active Substance: DIAZEPAM
     Dosage: 5 MG, QD
     Dates: start: 20180221, end: 20180221
  61. FEBURIC [Concomitant]
     Active Substance: FEBUXOSTAT
     Dosage: 40 MG, QD
     Route: 048
     Dates: start: 20180316, end: 20180425

REACTIONS (26)
  - Subdural haematoma [Fatal]
  - Increased ventricular preload [Unknown]
  - Post procedural complication [Unknown]
  - Dyspepsia [Not Recovered/Not Resolved]
  - Somnolence [Fatal]
  - Disease progression [Recovered/Resolved]
  - Cardiac failure [Recovered/Resolved]
  - Dyspnoea [Recovered/Resolved]
  - Diarrhoea [Not Recovered/Not Resolved]
  - Nausea [Not Recovered/Not Resolved]
  - Hypophagia [Not Recovered/Not Resolved]
  - Epistaxis [Recovered/Resolved]
  - Pyrexia [Not Recovered/Not Resolved]
  - Pneumonia [Not Recovered/Not Resolved]
  - Asthenia [Recovered/Resolved]
  - Cough [Not Recovered/Not Resolved]
  - Productive cough [Not Recovered/Not Resolved]
  - Pulmonary arterial hypertension [Recovered/Resolved]
  - Epidural haemorrhage [Not Recovered/Not Resolved]
  - Oedema peripheral [Recovered/Resolved]
  - Ascites [Recovered/Resolved]
  - Headache [Not Recovered/Not Resolved]
  - Stupor [Fatal]
  - Craniotomy [Unknown]
  - Injection site pain [Not Recovered/Not Resolved]
  - Upper respiratory tract infection [Not Recovered/Not Resolved]

NARRATIVE: CASE EVENT DATE: 2017
